FAERS Safety Report 22052997 (Version 6)
Quarter: 2023Q2

REPORT INFORMATION
  Report Type: Other
  Country: NZ (occurrence: None)
  Receive Date: 20230302
  Receipt Date: 20230512
  Transmission Date: 20230722
  Serious: Yes (Hospitalization, Other)
  Sender: FDA-Public Use
  Company Number: NZ-ROCHE-3296718

PATIENT
  Age: 23 Year
  Sex: Male
  Weight: 80 kg

DRUGS (32)
  1. RITUXIMAB [Suspect]
     Active Substance: RITUXIMAB
     Indication: Diffuse large B-cell lymphoma
     Route: 041
     Dates: start: 20221124, end: 20221126
  2. RITUXIMAB [Suspect]
     Active Substance: RITUXIMAB
     Route: 041
     Dates: start: 20221221, end: 20230106
  3. RITUXIMAB [Suspect]
     Active Substance: RITUXIMAB
     Dosage: END DATE: 24/FEB/2023
     Route: 041
     Dates: start: 20230112
  4. GLOFITAMAB [Suspect]
     Active Substance: GLOFITAMAB
     Indication: Diffuse large B-cell lymphoma
     Route: 042
  5. CYCLOPHOSPHAMIDE [Suspect]
     Active Substance: CYCLOPHOSPHAMIDE
     Indication: Diffuse large B-cell lymphoma
     Route: 042
     Dates: start: 20221124, end: 20221126
  6. CYCLOPHOSPHAMIDE [Suspect]
     Active Substance: CYCLOPHOSPHAMIDE
     Route: 042
     Dates: start: 20221221, end: 20230106
  7. DOXORUBICIN [Suspect]
     Active Substance: DOXORUBICIN
     Indication: Diffuse large B-cell lymphoma
     Route: 042
     Dates: start: 20221124, end: 20221126
  8. VINCRISTINE [Suspect]
     Active Substance: VINCRISTINE
     Indication: Diffuse large B-cell lymphoma
     Route: 042
     Dates: start: 20221124, end: 20221126
  9. VINCRISTINE [Suspect]
     Active Substance: VINCRISTINE
     Route: 042
     Dates: start: 20221221, end: 20230106
  10. PREDNISONE [Suspect]
     Active Substance: PREDNISONE
     Indication: Diffuse large B-cell lymphoma
     Route: 048
     Dates: start: 20221124, end: 20221126
  11. PREDNISONE [Suspect]
     Active Substance: PREDNISONE
     Route: 048
     Dates: start: 20221221, end: 20230106
  12. EPIRUBICIN [Suspect]
     Active Substance: EPIRUBICIN
     Indication: Diffuse large B-cell lymphoma
     Route: 065
     Dates: start: 20221221, end: 20230106
  13. IFOSFAMIDE [Suspect]
     Active Substance: IFOSFAMIDE
     Indication: Diffuse large B-cell lymphoma
     Dosage: END DATE 24/FEB/2023
     Route: 065
     Dates: start: 20230112
  14. CARBOPLATIN [Suspect]
     Active Substance: CARBOPLATIN
     Indication: Diffuse large B-cell lymphoma
     Dosage: END DATE: 24/FEB/2023
     Route: 065
     Dates: start: 20230112
  15. ETOPOSIDE [Suspect]
     Active Substance: ETOPOSIDE
     Indication: Diffuse large B-cell lymphoma
     Dosage: END DATE: 24/FEB/23
     Route: 065
     Dates: start: 20230112
  16. LEVETIRACETAM [Concomitant]
     Active Substance: LEVETIRACETAM
  17. PREDNISONE [Concomitant]
     Active Substance: PREDNISONE
  18. SULFAMETHOXAZOLE\TRIMETHOPRIM [Concomitant]
     Active Substance: SULFAMETHOXAZOLE\TRIMETHOPRIM
  19. ACETAMINOPHEN [Concomitant]
     Active Substance: ACETAMINOPHEN
  20. POLYETHYLENE GLYCOL 3350\POTASSIUM CHLORIDE\SODIUM BICARBONATE\SODIUM [Concomitant]
     Active Substance: POLYETHYLENE GLYCOL 3350\POTASSIUM CHLORIDE\SODIUM BICARBONATE\SODIUM CHLORIDE
  21. VALACYCLOVIR [Concomitant]
     Active Substance: VALACYCLOVIR HYDROCHLORIDE
  22. ONDANSETRON [Concomitant]
     Active Substance: ONDANSETRON
  23. FENTANYL [Concomitant]
     Active Substance: FENTANYL
  24. FLUCONAZOLE [Concomitant]
     Active Substance: FLUCONAZOLE
  25. OXYCODONE [Concomitant]
     Active Substance: OXYCODONE
  26. PREGABALIN [Concomitant]
     Active Substance: PREGABALIN
  27. POLY-TEARS [Concomitant]
  28. OMEPRAZOLE [Concomitant]
     Active Substance: OMEPRAZOLE
  29. AMITRIPTYLINE HYDROCHLORIDE [Concomitant]
     Active Substance: AMITRIPTYLINE HYDROCHLORIDE
  30. METOCLOPRAMIDE [Concomitant]
     Active Substance: METOCLOPRAMIDE
  31. ALFACALCIDOL [Concomitant]
     Active Substance: ALFACALCIDOL
     Dosage: IN MORNING
  32. ENOXAPARIN [Concomitant]
     Active Substance: ENOXAPARIN

REACTIONS (7)
  - Pneumonia [Unknown]
  - Diffuse large B-cell lymphoma refractory [Unknown]
  - Cardiomyopathy [Unknown]
  - Disease progression [Unknown]
  - Neutropenia [Unknown]
  - Candida infection [Unknown]
  - Cytokine release syndrome [Unknown]

NARRATIVE: CASE EVENT DATE: 20221201
